FAERS Safety Report 5184453-X (Version None)
Quarter: 2006Q4

REPORT INFORMATION
  Report Type: 
  Country: None (occurrence: None)
  Receive Date: 20061220
  Receipt Date: 20060411
  Transmission Date: 20070319
  Serious: No
  Sender: FDA-Public Use
  Company Number: US-GLAXOSMITHKLINE-A0601308A

PATIENT
  Age: 43 Year
  Sex: Female

DRUGS (4)
  1. NICODERM CQ [Suspect]
  2. THEOPHYLLINE [Concomitant]
  3. HYDRALAZINE HCL [Concomitant]
  4. BENAZEPRIL HCL [Concomitant]

REACTIONS (1)
  - HYPERTENSION [None]
